FAERS Safety Report 18166560 (Version 1)
Quarter: 2020Q3

REPORT INFORMATION
  Report Type: Spontaneous
  Country: US (occurrence: US)
  Receive Date: 20200818
  Receipt Date: 20200818
  Transmission Date: 20201103
  Serious: Yes (Other)
  Sender: FDA-Public Use
  Company Number: US-OTSUKA-2019_027299

PATIENT
  Sex: Female
  Weight: 52.16 kg

DRUGS (1)
  1. ABILIFY [Suspect]
     Active Substance: ARIPIPRAZOLE
     Indication: PRODUCT USED FOR UNKNOWN INDICATION
     Dosage: 2 MG, QD (2 MG ONE TABLET DAILY)
     Route: 048

REACTIONS (6)
  - Headache [Unknown]
  - Migraine [Recovering/Resolving]
  - Drug ineffective [Unknown]
  - Seizure [Recovering/Resolving]
  - Abnormal dreams [Unknown]
  - Feeling abnormal [Unknown]
